FAERS Safety Report 5113803-5 (Version None)
Quarter: 2006Q3

REPORT INFORMATION
  Report Type: 
  Country: None (occurrence: None)
  Receive Date: 20060925
  Receipt Date: 20051219
  Transmission Date: 20061208
  Serious: Yes (Hospitalization)
  Sender: FDA-Public Use
  Company Number: DE-ROCHE-428966

PATIENT
  Age: 69 Year
  Sex: Male

DRUGS (5)
  1. MYCOPHENOLATE MOFETIL [Suspect]
     Route: 048
     Dates: start: 20050929, end: 20051013
  2. MYCOPHENOLATE MOFETIL [Suspect]
     Route: 048
     Dates: start: 20051014
  3. TACROLIMUS [Suspect]
     Route: 048
     Dates: start: 20050929, end: 20051006
  4. TACROLIMUS [Suspect]
     Route: 048
     Dates: start: 20051006, end: 20051212
  5. TACROLIMUS [Suspect]
     Route: 048
     Dates: start: 20051213

REACTIONS (10)
  - CONDITION AGGRAVATED [None]
  - CYTOMEGALOVIRUS INFECTION [None]
  - DIABETES MELLITUS [None]
  - DISEASE RECURRENCE [None]
  - HYPERCALCAEMIA [None]
  - HYPERTENSION [None]
  - HYPONATRAEMIA [None]
  - RENAL HAEMATOMA [None]
  - URINARY TRACT INFECTION PSEUDOMONAL [None]
  - WOUND INFECTION [None]
